FAERS Safety Report 4347935-6 (Version None)
Quarter: 2004Q2

REPORT INFORMATION
  Report Type: 
  Country: None (occurrence: None)
  Receive Date: 20040422
  Receipt Date: 20040413
  Transmission Date: 20050107
  Serious: Yes (Life-Threatening, Hospitalization)
  Sender: FDA-Public Use
  Company Number: HQWYE867616MAR04

PATIENT
  Age: 70 Year
  Sex: Female
  Weight: 68.55 kg

DRUGS (7)
  1. EFFEXOR XR [Suspect]
     Dosage: 37.5 MG 1 X PER 1 TOT, ORAL
     Route: 048
     Dates: start: 20040217, end: 20040217
  2. CELEBREX [Concomitant]
  3. LIPITOR [Concomitant]
  4. ATENOLOL [Concomitant]
  5. MONOPRIL [Concomitant]
  6. HYDROCHLOROTHIAZIDE [Concomitant]
  7. ACETYLSALICYLIC ACID SRT [Concomitant]

REACTIONS (1)
  - HYPERTENSIVE CRISIS [None]
